FAERS Safety Report 4793795-9 (Version None)
Quarter: 2005Q4

REPORT INFORMATION
  Report Type: 
  Country: None (occurrence: None)
  Receive Date: 20051011
  Receipt Date: 20050906
  Transmission Date: 20060501
  Serious: Yes (Other)
  Sender: FDA-Public Use
  Company Number: US-AMGEN-US149418

PATIENT
  Sex: Female

DRUGS (10)
  1. ENBREL [Suspect]
     Indication: RHEUMATOID ARTHRITIS
     Route: 058
     Dates: start: 20050808, end: 20050818
  2. SYNTHROID [Concomitant]
     Route: 048
  3. ESTRACE [Concomitant]
     Route: 048
  4. PROMETRIUM (RP SCHERER NORTH AMERICA) [Concomitant]
     Route: 048
  5. GLUCOSAMINE [Concomitant]
  6. IRON [Concomitant]
  7. VITAMIN D [Concomitant]
  8. VITAMIN E [Concomitant]
  9. ASCORBIC ACID [Concomitant]
  10. MULTI-VITAMINS [Concomitant]

REACTIONS (6)
  - ARTHRALGIA [None]
  - DIPLOPIA [None]
  - MULTIPLE SCLEROSIS [None]
  - RHEUMATOID ARTHRITIS [None]
  - VITH NERVE PARALYSIS [None]
  - WHITE BLOOD CELL COUNT DECREASED [None]
